FAERS Safety Report 25125666 (Version 1)
Quarter: 2025Q1

REPORT INFORMATION
  Report Type: Spontaneous
  Country: DE (occurrence: DE)
  Receive Date: 20250326
  Receipt Date: 20250326
  Transmission Date: 20250408
  Serious: Yes (Hospitalization, Other)
  Sender: MYLAN
  Company Number: DE-SANDOZ-SDZ2025DE014543

PATIENT
  Sex: Female

DRUGS (12)
  1. ZOLEDRONIC ACID [Suspect]
     Active Substance: ZOLEDRONIC ACID
     Indication: Hypercalcaemia of malignancy
  2. ZOLEDRONIC ACID [Suspect]
     Active Substance: ZOLEDRONIC ACID
     Route: 042
  3. ZOLEDRONIC ACID [Suspect]
     Active Substance: ZOLEDRONIC ACID
     Route: 042
  4. ZOLEDRONIC ACID [Suspect]
     Active Substance: ZOLEDRONIC ACID
  5. TAMOXIFEN [Suspect]
     Active Substance: TAMOXIFEN
     Indication: Invasive breast carcinoma
  6. TAMOXIFEN [Suspect]
     Active Substance: TAMOXIFEN
     Route: 065
  7. TAMOXIFEN [Suspect]
     Active Substance: TAMOXIFEN
     Route: 065
  8. TAMOXIFEN [Suspect]
     Active Substance: TAMOXIFEN
  9. PACLITAXEL [Suspect]
     Active Substance: PACLITAXEL
     Indication: Breast cancer metastatic
     Dosage: 80 MILLIGRAM/SQ. METER, QW (80 MG/M2, QW)
  10. PACLITAXEL [Suspect]
     Active Substance: PACLITAXEL
     Dosage: 80 MILLIGRAM/SQ. METER, QW (80 MG/M2, QW)
     Route: 065
  11. PACLITAXEL [Suspect]
     Active Substance: PACLITAXEL
     Dosage: 80 MILLIGRAM/SQ. METER, QW (80 MG/M2, QW)
     Route: 065
  12. PACLITAXEL [Suspect]
     Active Substance: PACLITAXEL
     Dosage: 80 MILLIGRAM/SQ. METER, QW (80 MG/M2, QW)

REACTIONS (1)
  - Hypercalcaemia of malignancy [Recovered/Resolved]

NARRATIVE: CASE EVENT DATE: 20190801
